FAERS Safety Report 10525493 (Version 2)
Quarter: 2014Q4

REPORT INFORMATION
  Report Type: Spontaneous
  Country: NO (occurrence: NO)
  Receive Date: 20141017
  Receipt Date: 20141017
  Transmission Date: 20150528
  Serious: Yes (Other)
  Sender: FDA-Public Use
  Company Number: NO-BAYER-2014-128411

PATIENT
  Age: 32 Year
  Sex: Female
  Weight: 52 kg

DRUGS (2)
  1. MIRENA [Suspect]
     Active Substance: LEVONORGESTREL
     Indication: CONTRACEPTION
  2. MIRENA [Suspect]
     Active Substance: LEVONORGESTREL
     Indication: MENSTRUAL CYCLE MANAGEMENT
     Dosage: 20 MCG/24HR, CONT
     Route: 015
     Dates: start: 20110413, end: 20140829

REACTIONS (3)
  - Ruptured ectopic pregnancy [Recovered/Resolved]
  - Ectopic pregnancy with contraceptive device [Recovered/Resolved]
  - Drug ineffective [None]

NARRATIVE: CASE EVENT DATE: 2014
